FAERS Safety Report 9631041 (Version 1)
Quarter: 2013Q4

REPORT INFORMATION
  Report Type: Spontaneous
  Country: US (occurrence: None)
  Receive Date: 20131016
  Receipt Date: 20131016
  Transmission Date: 20140711
  Serious: Yes (Hospitalization)
  Sender: FDA-Public Use
  Company Number: None

PATIENT
  Age: 73 Year
  Sex: Female
  Weight: 108.8 kg

DRUGS (22)
  1. CARBOPLATIN [Suspect]
  2. PACLITAXEL (TAXOL) [Suspect]
  3. COLACE [Concomitant]
  4. CYMBALTA [Concomitant]
  5. GENTAMYCIN [Concomitant]
  6. LOVENOX [Concomitant]
  7. MS CONTIN [Concomitant]
  8. MAVIK [Concomitant]
  9. MEGACE [Concomitant]
  10. MELOXICAM [Concomitant]
  11. NEXIUM [Concomitant]
  12. ONDANSETRON [Concomitant]
  13. OXY IR [Concomitant]
  14. PRAVASTATIN [Concomitant]
  15. PROTONIX [Concomitant]
  16. PYRIDIUM [Concomitant]
  17. ROCEPHIN [Concomitant]
  18. SYNTHROID [Concomitant]
  19. TRANLDOLAPRIL [Concomitant]
  20. VERAPAMIL HCL [Concomitant]
  21. WARFARIN [Concomitant]
  22. ZOSYN [Concomitant]

REACTIONS (6)
  - Urethritis [None]
  - Anaemia [None]
  - Confusional state [None]
  - Hyponatraemia [None]
  - Urosepsis [None]
  - Neutropenia [None]
